FAERS Safety Report 15725652 (Version 1)
Quarter: 2018Q4

REPORT INFORMATION
  Report Type: Spontaneous
  Country: IT (occurrence: IT)
  Receive Date: 20181215
  Receipt Date: 20181215
  Transmission Date: 20190205
  Serious: Yes (Life-Threatening)
  Sender: FDA-Public Use
  Company Number: IT-TEVA-2018-IT-985450

PATIENT
  Age: 64 Year
  Sex: Male

DRUGS (3)
  1. PLASIL [Suspect]
     Active Substance: METOCLOPRAMIDE HYDROCHLORIDE
     Indication: PROCEDURAL NAUSEA
     Dosage: 10 MILLIGRAM DAILY;
     Route: 042
     Dates: start: 20051103, end: 20051103
  2. CLINDAMICINE [Concomitant]
     Route: 042
  3. TRAMADOLE [Suspect]
     Active Substance: TRAMADOL HYDROCHLORIDE
     Indication: PROCEDURAL PAIN
     Dosage: 100 MILLIGRAM DAILY;
     Route: 042
     Dates: start: 20051103, end: 20051103

REACTIONS (3)
  - Generalised erythema [Unknown]
  - Rash generalised [Recovered/Resolved]
  - Hypotension [Recovered/Resolved]

NARRATIVE: CASE EVENT DATE: 20051103
